FAERS Safety Report 8397481-8 (Version None)
Quarter: 2012Q2

REPORT INFORMATION
  Report Type: 
  Country: None (occurrence: None)
  Receive Date: 20120529
  Receipt Date: 20120529
  Transmission Date: 20120825
  Serious: Yes (Disabling)
  Sender: FDA-Public Use
  Company Number: None

PATIENT
  Sex: Male
  Weight: 79.5 kg

DRUGS (1)
  1. PROPECIA [Suspect]
     Indication: ANDROGENETIC ALOPECIA
     Dosage: 1.5ML ONCE A DAY
     Dates: start: 20050405, end: 20110608

REACTIONS (8)
  - DEPRESSION [None]
  - PAIN [None]
  - SEXUAL DYSFUNCTION [None]
  - MOOD SWINGS [None]
  - MUSCLE ATROPHY [None]
  - SUICIDAL IDEATION [None]
  - DISTURBANCE IN ATTENTION [None]
  - MUSCLE FATIGUE [None]
